FAERS Safety Report 5714239-6 (Version None)
Quarter: 2008Q2

REPORT INFORMATION
  Report Type: 
  Country: None (occurrence: None)
  Receive Date: 20080423
  Receipt Date: 20070723
  Transmission Date: 20081010
  Serious: No
  Sender: FDA-Public Use
  Company Number: US-KINGPHARMUSA00001-K200700931

PATIENT

DRUGS (7)
  1. SKELAXIN [Suspect]
     Indication: MUSCLE SPASMS
     Dosage: 800 MG, QD TO BID
     Route: 048
     Dates: start: 20070721, end: 20070723
  2. SKELAXIN [Suspect]
     Indication: PAIN
  3. ZOLOFT [Concomitant]
  4. NEURONTIN [Concomitant]
  5. LISINOPRIL [Concomitant]
  6. ALPRAZOLAM [Concomitant]
     Dosage: .5 UNK, UNK
  7. ALEVE [Concomitant]
     Indication: PAIN
     Dosage: 2 TABS, QD

REACTIONS (2)
  - NAUSEA [None]
  - NERVOUSNESS [None]
